FAERS Safety Report 8837401 (Version 1)
Quarter: 2012Q4

REPORT INFORMATION
  Report Type: 
  Country: US (occurrence: US)
  Receive Date: 20121012
  Receipt Date: 20121012
  Transmission Date: 20130627
  Serious: Yes (Hospitalization)
  Sender: FDA-Public Use
  Company Number: US-MYLANLABS-2012S1019912

PATIENT
  Age: 58 Year
  Sex: Female
  Weight: 83.92 kg

DRUGS (9)
  1. EXTENDED PHENYTOIN SODIUM CAPSULES, USP [Suspect]
     Indication: CONVULSION PROPHYLAXIS
     Route: 048
     Dates: start: 20120904, end: 20120910
  2. EXTENDED PHENYTOIN SODIUM CAPSULES, USP [Suspect]
     Indication: BRAIN NEOPLASM
     Route: 048
     Dates: start: 20120904, end: 20120910
  3. EXTENDED PHENYTOIN SODIUM CAPSULES, USP [Suspect]
     Indication: CONVULSION PROPHYLAXIS
     Route: 048
     Dates: start: 20120912, end: 20120917
  4. EXTENDED PHENYTOIN SODIUM CAPSULES, USP [Suspect]
     Indication: BRAIN NEOPLASM
     Route: 048
     Dates: start: 20120912, end: 20120917
  5. ATENOLOL [Concomitant]
     Indication: HYPERTENSION
  6. UNIRETIC /00206601/ [Concomitant]
     Indication: HYPERTENSION
     Dosage: 15mg/25mg
  7. LIPITOR [Concomitant]
  8. ALLOPURINOL [Concomitant]
  9. TYLENOL [Concomitant]
     Indication: PAIN

REACTIONS (3)
  - Drug ineffective [Recovered/Resolved]
  - Convulsion [Recovered/Resolved]
  - Anticonvulsant drug level below therapeutic [Recovered/Resolved]
